FAERS Safety Report 7240753-0 (Version None)
Quarter: 2011Q1

REPORT INFORMATION
  Report Type: 
  Country: None (occurrence: None)
  Receive Date: 20110124
  Receipt Date: 20110114
  Transmission Date: 20110831
  Serious: Yes (Hospitalization)
  Sender: FDA-Public Use
  Company Number: FR-JNJFOC-20110104204

PATIENT
  Sex: Male
  Weight: 33.7 kg

DRUGS (4)
  1. REMICADE [Suspect]
     Indication: CROHN'S DISEASE
     Route: 042
  2. HUMIRA [Concomitant]
  3. ACYCLOVIR [Concomitant]
  4. ANTIBIOTICS [Concomitant]
     Indication: CROHN'S DISEASE

REACTIONS (6)
  - ADENOVIRUS INFECTION [None]
  - ABDOMINAL PAIN [None]
  - GASTROENTERITIS [None]
  - PYREXIA [None]
  - DIARRHOEA [None]
  - VOMITING [None]
